FAERS Safety Report 5596040-X (Version None)
Quarter: 2008Q1

REPORT INFORMATION
  Report Type: 
  Country: None (occurrence: None)
  Receive Date: 20080118
  Receipt Date: 20080107
  Transmission Date: 20080703
  Serious: Yes (Death)
  Sender: FDA-Public Use
  Company Number: FR-ROCHE-540210

PATIENT
  Age: 74 Year
  Sex: Female

DRUGS (2)
  1. CAPECITABINE [Suspect]
     Dosage: 3000MG GIVEN ON DAYS 1-14 OF EACH COURSE
     Route: 048
     Dates: start: 20040325, end: 20040407
  2. ELOXATIN [Suspect]
     Dosage: 200MG ON DAY 1 OF EACH CYCLE
     Route: 042
     Dates: start: 20040326, end: 20040326

REACTIONS (3)
  - ACUTE ABDOMEN [None]
  - FEBRILE NEUTROPENIA [None]
  - HAEMATEMESIS [None]
